FAERS Safety Report 10017309 (Version 2)
Quarter: 2014Q1

REPORT INFORMATION
  Report Type: Spontaneous
  Country: JP (occurrence: None)
  Receive Date: 20140311
  Receipt Date: 20140325
  Transmission Date: 20141002
  Serious: Yes (Hospitalization)
  Sender: FDA-Public Use
  Company Number: JP-014917

PATIENT
  Age: 73 Year
  Sex: Male
  Weight: 63.5 kg

DRUGS (1)
  1. FIRMAGON [Suspect]
     Indication: PROSTATE CANCER
     Dosage: 80 MG 1X/MONTH, SUBCUTANEOUS
     Route: 058
     Dates: start: 20121221, end: 20121221

REACTIONS (5)
  - Back pain [None]
  - Injection site erythema [None]
  - Injection site swelling [None]
  - Injection site pain [None]
  - Injection site haemorrhage [None]
